FAERS Safety Report 17908588 (Version 2)
Quarter: 2020Q2

REPORT INFORMATION
  Report Type: Spontaneous
  Country: US (occurrence: US)
  Receive Date: 20200617
  Receipt Date: 20200622
  Transmission Date: 20200714
  Serious: Yes (Life-Threatening, Other)
  Sender: FDA-Public Use
  Company Number: US-PFIZER INC-2020232556

PATIENT
  Age: 27 Year
  Sex: Female

DRUGS (16)
  1. ADRENALINE TARTRATE [Concomitant]
     Active Substance: EPINEPHRINE BITARTRATE
     Indication: NERVE BLOCK
     Dosage: 30 ML
  2. MORPHINE SULPHATE [Concomitant]
     Active Substance: MORPHINE SULFATE
     Indication: LIMB INJURY
     Dosage: 6 MG
     Route: 042
  3. DROPERIDOL. [Concomitant]
     Active Substance: DROPERIDOL
     Indication: LIMB INJURY
     Dosage: 0.625 MG
     Route: 042
  4. LIDOCAINE. [Concomitant]
     Active Substance: LIDOCAINE
     Indication: NERVE BLOCK
     Dosage: 525 MG, (1.5%)
  5. ADRENALINE TARTRATE [Concomitant]
     Active Substance: EPINEPHRINE BITARTRATE
     Dosage: 1 MG (1 ML OF 1:1000)
  6. CEFAZOLIN [Concomitant]
     Active Substance: CEFAZOLIN
     Dosage: 2 G
     Route: 042
  7. DROPERIDOL. [Concomitant]
     Active Substance: DROPERIDOL
     Indication: SEDATION
  8. DIPHTHERIA AND TETANUS TOXOIDS [Concomitant]
     Active Substance: DIPHTHERIA AND TETANUS TOXOIDS
     Indication: LIMB INJURY
     Dosage: UNK
  9. LIDOCAINE. [Concomitant]
     Active Substance: LIDOCAINE
     Dosage: 75 MG (1.5%, WITH EPINEPHRINE (5 ML))
  10. LIDOCAINE. [Concomitant]
     Active Substance: LIDOCAINE
     Dosage: 450 MG (1.5%, WITH EPINEPHRINE (30 ML))
  11. EPINEPHRINE. [Concomitant]
     Active Substance: EPINEPHRINE
  12. BUPIVACAINE HCL [Suspect]
     Active Substance: BUPIVACAINE HYDROCHLORIDE
     Indication: LIMB INJURY
     Dosage: 75 MG
  13. BUPIVACAINE HCL [Suspect]
     Active Substance: BUPIVACAINE HYDROCHLORIDE
     Indication: NERVE BLOCK
  14. CEFAZOLIN [Concomitant]
     Active Substance: CEFAZOLIN
     Indication: LIMB INJURY
     Dosage: 2 G
     Route: 042
  15. MIDAZOLAM. [Concomitant]
     Active Substance: MIDAZOLAM
     Indication: SEDATION
     Dosage: 5 MG
     Route: 042
  16. BUPRENORPHINE. [Concomitant]
     Active Substance: BUPRENORPHINE
     Indication: LIMB INJURY
     Dosage: 0.3 MG

REACTIONS (1)
  - Cardiac arrest [Recovered/Resolved]
